FAERS Safety Report 24710576 (Version 1)
Quarter: 2024Q4

REPORT INFORMATION
  Report Type: Spontaneous
  Country: US (occurrence: US)
  Receive Date: 20241209
  Receipt Date: 20241209
  Transmission Date: 20250115
  Serious: Yes (Hospitalization)
  Sender: AMGEN
  Company Number: US-AMGEN-USASP2024240118

PATIENT
  Age: 67 Year
  Sex: Female

DRUGS (2)
  1. BLINATUMOMAB [Suspect]
     Active Substance: BLINATUMOMAB
     Indication: B precursor type acute leukaemia
     Dosage: UNK
     Route: 065
  2. DASATINIB [Suspect]
     Active Substance: DASATINIB
     Indication: B precursor type acute leukaemia
     Route: 065

REACTIONS (1)
  - Stress cardiomyopathy [Recovered/Resolved]
